FAERS Safety Report 7232675-6 (Version None)
Quarter: 2011Q1

REPORT INFORMATION
  Report Type: 
  Country: None (occurrence: None)
  Receive Date: 20110119
  Receipt Date: 20110104
  Transmission Date: 20110831
  Serious: No
  Sender: FDA-Public Use
  Company Number: US-B.I. PHARMACEUTICALS,INC./RIDGEFIELD-2011-BP-00629BP

PATIENT
  Sex: Female

DRUGS (10)
  1. ZIAC [Concomitant]
     Indication: HYPERTENSION
     Route: 048
  2. NEXIUM [Concomitant]
     Dosage: 40 MG
     Route: 048
  3. PRADAXA [Suspect]
     Indication: THROMBOSIS
     Dosage: 300 MG
     Route: 048
     Dates: start: 20101213
  4. ADVAIR [Concomitant]
     Indication: ASTHMA
     Route: 055
  5. METFORMIN HCL [Concomitant]
     Indication: DIABETES MELLITUS
     Dosage: 1000 MG
     Route: 048
  6. SIMVASTATIN [Concomitant]
     Indication: BLOOD CHOLESTEROL INCREASED
     Dosage: 80 MG
     Route: 048
  7. ACTOS [Concomitant]
     Indication: DIABETES MELLITUS
     Dosage: 1000 MG
     Route: 048
  8. SPIRONOLACTONE [Concomitant]
     Indication: FLUID RETENTION
     Dosage: 25 MG
     Route: 048
  9. JANUVIA [Concomitant]
     Indication: DIABETES MELLITUS
     Dosage: 100 MG
     Route: 048
  10. PROAIR HFA [Concomitant]
     Indication: ASTHMA
     Route: 055

REACTIONS (1)
  - PAIN IN EXTREMITY [None]
